FAERS Safety Report 6542000-1 (Version None)
Quarter: 2010Q1

REPORT INFORMATION
  Report Type: 
  Country: None (occurrence: None)
  Receive Date: 20100119
  Receipt Date: 20100108
  Transmission Date: 20100710
  Serious: Yes (Hospitalization)
  Sender: FDA-Public Use
  Company Number: US-MYLANLABS-2009S1021273

PATIENT
  Age: 79 Year
  Sex: Female
  Weight: 54.43 kg

DRUGS (11)
  1. FENTANYL CITRATE [Suspect]
     Indication: CANCER PAIN
     Dosage: CHANGED Q72H
     Route: 062
     Dates: start: 20091008, end: 20091123
  2. TYLENOL (CAPLET) [Concomitant]
     Indication: PAIN
     Route: 048
  3. ATIVAN [Concomitant]
     Indication: ANXIETY
     Route: 048
  4. METFORMIN HCL [Concomitant]
     Indication: DIABETES MELLITUS
     Route: 048
  5. MORPHINE [Concomitant]
  6. SORBITOL [Concomitant]
  7. PRILOSEC [Concomitant]
  8. NYSTATIN [Concomitant]
  9. GLYBURIDE [Concomitant]
  10. NAMENDA [Concomitant]
  11. EXELON [Concomitant]

REACTIONS (8)
  - CHOKING [None]
  - ELDER ABUSE [None]
  - INCORRECT DRUG ADMINISTRATION DURATION [None]
  - LETHARGY [None]
  - MUSCLE DISORDER [None]
  - OVERDOSE [None]
  - RESPIRATORY DISTRESS [None]
  - THERAPY NAIVE [None]
